FAERS Safety Report 23164481 (Version 1)
Quarter: 2023Q4

REPORT INFORMATION
  Report Type: Spontaneous
  Country: US (occurrence: US)
  Receive Date: 20231109
  Receipt Date: 20231109
  Transmission Date: 20240110
  Serious: No
  Sender: FDA-Public Use
  Company Number: US-002147023-NVSC2023US203960

PATIENT
  Sex: Female
  Weight: 74.84 kg

DRUGS (2)
  1. ADALIMUMAB [Suspect]
     Active Substance: ADALIMUMAB\ISOPROPYL ALCOHOL
     Indication: Hidradenitis
     Dosage: UNK
     Route: 065
  2. COSENTYX [Suspect]
     Active Substance: SECUKINUMAB
     Indication: Hidradenitis
     Dosage: UNK INJECTION NOT OTHERWISE SPECIFIED
     Route: 065

REACTIONS (3)
  - Psoriasis [Unknown]
  - Dermatitis acneiform [Unknown]
  - Drug ineffective [Unknown]
